FAERS Safety Report 25500669 (Version 9)
Quarter: 2025Q4

REPORT INFORMATION
  Report Type: Report from Study
  Country: KR (occurrence: KR)
  Receive Date: 20250701
  Receipt Date: 20251214
  Transmission Date: 20260117
  Serious: Yes (Hospitalization, Other)
  Sender: ABBVIE
  Company Number: KR-ABBVIE-6099826

PATIENT
  Age: 28 Year
  Sex: Female
  Weight: 62 kg

DRUGS (6)
  1. RINVOQ [Suspect]
     Active Substance: UPADACITINIB
     Indication: Crohn^s disease
     Dosage: FORM STRENGTH: 1 TABLET
     Route: 048
     Dates: start: 20241212, end: 20250305
  2. RINVOQ [Suspect]
     Active Substance: UPADACITINIB
     Indication: Crohn^s disease
     Dosage: FORM STRENGTH: 1 TABLET
     Route: 048
     Dates: start: 20250306
  3. PENIRAMIN [Concomitant]
     Indication: Prophylaxis
     Dosage: 4 MG
     Route: 042
     Dates: start: 20250118, end: 20250118
  4. BIOFLOR [Concomitant]
     Indication: Prophylaxis
     Dosage: UNIT DOSE: 1 OTHER (PACK)?250MG/PACK?POWDER
     Route: 048
     Dates: start: 20250306
  5. D3 BASE [Concomitant]
     Indication: Prophylaxis
     Dosage: ORAL SOLUTION 2.5 ML?UNIT DOSE: 1 VIAL
     Route: 048
     Dates: start: 20250206, end: 20250206
  6. AMINO ACIDS\DEXTROSE\ELECTROLYTES NOS\SOYBEAN OIL\VITAMINS [Concomitant]
     Active Substance: AMINO ACIDS\DEXTROSE\ELECTROLYTES NOS\SOYBEAN OIL\VITAMINS
     Indication: Prophylaxis
     Route: 042
     Dates: start: 20250117, end: 20250122

REACTIONS (9)
  - Haematochezia [Recovering/Resolving]
  - Acne [Recovering/Resolving]
  - Haematochezia [Recovered/Resolved with Sequelae]
  - Anaemia [Recovering/Resolving]
  - Intestinal obstruction [Recovered/Resolved]
  - Abdominal pain [Recovered/Resolved]
  - Haematochezia [Recovered/Resolved]
  - Clostridium difficile infection [Recovering/Resolving]
  - Dizziness [Recovering/Resolving]

NARRATIVE: CASE EVENT DATE: 20241225
